FAERS Safety Report 6940131-5 (Version None)
Quarter: 2010Q3

REPORT INFORMATION
  Report Type: 
  Country: None (occurrence: None)
  Receive Date: 20100820
  Receipt Date: 20100805
  Transmission Date: 20110219
  Serious: Yes (Hospitalization)
  Sender: FDA-Public Use
  Company Number: 2010MA001459

PATIENT
  Age: 39 Year
  Sex: Male

DRUGS (6)
  1. VENLAFAXINE HYDROCHLORIDE [Suspect]
     Indication: ANXIETY
     Dosage: 75 MG;Q12H
  2. VENLAFAXINE HYDROCHLORIDE [Suspect]
     Indication: DEPRESSION
     Dosage: 75 MG;Q12H
  3. LORAZEPAM [Suspect]
     Indication: ANXIETY
     Dosage: 1 MG;QD;
  4. LORAZEPAM [Suspect]
     Indication: DEPRESSION
     Dosage: 1 MG;QD;
  5. DIPOTASSIUM CLORAZEPATE (CLORAZEPATE DIPOTASSIUM) [Suspect]
     Indication: ANXIETY
     Dosage: 15 MG; QD
  6. DIPOTASSIUM CLORAZEPATE (CLORAZEPATE DIPOTASSIUM) [Suspect]
     Indication: DEPRESSION
     Dosage: 15 MG; QD

REACTIONS (4)
  - CHOLELITHIASIS [None]
  - CYTOLYTIC HEPATITIS [None]
  - HEPATITIS CHOLESTATIC [None]
  - HEPATOTOXICITY [None]
